FAERS Safety Report 9397847 (Version 1)
Quarter: 2013Q3

REPORT INFORMATION
  Report Type: Spontaneous
  Country: US (occurrence: None)
  Receive Date: 20130711
  Receipt Date: 20130711
  Transmission Date: 20140515
  Serious: Yes (Disabling)
  Sender: FDA-Public Use
  Company Number: None

PATIENT
  Age: 79 Year
  Sex: Male
  Weight: 54.5 kg

DRUGS (1)
  1. SOLESTA [Suspect]
     Indication: INCONTINENCE
     Dosage: STANDARD PREPACKAGED DOSE

REACTIONS (5)
  - Proctalgia [None]
  - Abdominal pain [None]
  - Pyrexia [None]
  - Diarrhoea [None]
  - Tenderness [None]
